FAERS Safety Report 18721293 (Version 2)
Quarter: 2021Q3

REPORT INFORMATION
  Report Type: Report from Study
  Country: IN (occurrence: IN)
  Receive Date: 20210109
  Receipt Date: 20210726
  Transmission Date: 20211014
  Serious: Yes (Death, Hospitalization, Other)
  Sender: FDA-Public Use
  Company Number: NVSC2021IN004030

PATIENT
  Age: 71 Year
  Sex: Female

DRUGS (1)
  1. VYMADA [Suspect]
     Active Substance: SACUBITRIL\VALSARTAN
     Indication: CARDIAC FAILURE
     Dosage: 50 MG, QD
     Route: 048
     Dates: start: 20170811

REACTIONS (6)
  - Product use issue [Not Recovered/Not Resolved]
  - Dysphagia [Fatal]
  - Paralysis [Recovering/Resolving]
  - Movement disorder [Recovering/Resolving]
  - Neck pain [Fatal]
  - Asthenia [Fatal]

NARRATIVE: CASE EVENT DATE: 20170811
